FAERS Safety Report 14226622 (Version 1)
Quarter: 2017Q4

REPORT INFORMATION
  Report Type: Spontaneous
  Country: US (occurrence: US)
  Receive Date: 20171127
  Receipt Date: 20171127
  Transmission Date: 20180321
  Serious: Yes (Other)
  Sender: FDA-Public Use
  Company Number: US-JNJFOC-20171118726

PATIENT
  Age: 40 Year
  Sex: Female

DRUGS (2)
  1. SHOWER TO SHOWER POWDER [Suspect]
     Active Substance: TALC
     Indication: PRODUCT USED FOR UNKNOWN INDICATION
     Route: 061
     Dates: start: 1970, end: 2005
  2. JOHNSONS BABY POWDER [Suspect]
     Active Substance: TALC
     Indication: PRODUCT USED FOR UNKNOWN INDICATION
     Route: 061
     Dates: start: 1970, end: 2005

REACTIONS (1)
  - Ovarian cancer [Unknown]

NARRATIVE: CASE EVENT DATE: 201103
